FAERS Safety Report 12263147 (Version 1)
Quarter: 2016Q2

REPORT INFORMATION
  Report Type: Spontaneous
  Country: JP (occurrence: JP)
  Receive Date: 20160413
  Receipt Date: 20160413
  Transmission Date: 20160815
  Serious: Yes (Life-Threatening, Hospitalization, Other)
  Sender: FDA-Public Use
  Company Number: JP-APOTEX-2016AP007757

PATIENT
  Age: 59 Year

DRUGS (1)
  1. PAXIL [Suspect]
     Active Substance: PAROXETINE HYDROCHLORIDE
     Indication: DEPRESSED MOOD
     Route: 048

REACTIONS (3)
  - Chemical poisoning [Unknown]
  - Suicide attempt [Unknown]
  - Suicidal ideation [Unknown]
